FAERS Safety Report 10270318 (Version 3)
Quarter: 2014Q3

REPORT INFORMATION
  Report Type: Spontaneous
  Country: JP (occurrence: None)
  Receive Date: 20140626
  Receipt Date: 20140815
  Transmission Date: 20150326
  Serious: Yes (Hospitalization)
  Sender: FDA-Public Use
  Company Number: ABR_01710_2014

PATIENT
  Age: 50 Year
  Sex: Female

DRUGS (2)
  1. GLIADEL [Suspect]
     Active Substance: CARMUSTINE
     Indication: MALIGNANT GLIOMA
     Dosage: 8 DF  1X, (61.6 MG] INTRACEREBRAL)
     Dates: start: 20140326
  2. AVASTIN [Concomitant]
     Active Substance: BEVACIZUMAB
     Indication: MALIGNANT GLIOMA
     Dosage: DF [ONCE]
     Route: 042
     Dates: start: 20140521, end: 20140521

REACTIONS (1)
  - Wound infection [None]

NARRATIVE: CASE EVENT DATE: 20140501
